FAERS Safety Report 7586987-7 (Version None)
Quarter: 2011Q3

REPORT INFORMATION
  Report Type: 
  Country: None (occurrence: None)
  Receive Date: 20110701
  Receipt Date: 20110622
  Transmission Date: 20111222
  Serious: Yes (Hospitalization, Other)
  Sender: FDA-Public Use
  Company Number: PHHY2009JP59281

PATIENT
  Sex: Male

DRUGS (41)
  1. OXYCONTIN [Suspect]
     Dosage: 15 MG, UNK
     Route: 048
     Dates: start: 20090807, end: 20110411
  2. ONCOVIN [Suspect]
  3. LASIX [Concomitant]
     Dosage: 10 MG, UNK
     Route: 042
     Dates: start: 20090807, end: 20090811
  4. ALOSITOL [Concomitant]
  5. ALDOMET [Concomitant]
  6. DUROTEP JANSSEN [Concomitant]
  7. ANAFRANIL [Suspect]
     Dosage: 35 MG DAILY
     Route: 048
     Dates: start: 20090826, end: 20090830
  8. ACETAMINOPHEN [Suspect]
     Dosage: 6 DF, UNK
     Route: 048
     Dates: start: 20100415, end: 20100506
  9. MEXITIL [Suspect]
     Dosage: 300 MG, DAILY
     Route: 048
     Dates: start: 20100409, end: 20100506
  10. MAGNESIUM SULFATE [Concomitant]
     Indication: PROPHYLAXIS
     Dosage: 990 MG, UNK
     Route: 048
     Dates: start: 20090903
  11. MAGNESIUM SULFATE [Concomitant]
     Dosage: 1980 MG, UNK
     Route: 048
  12. MAGNESIUM SULFATE [Concomitant]
     Dosage: 990 MG, UNK
     Route: 048
  13. CARBOCAIN [Concomitant]
     Dosage: 10 ML, UNK
     Route: 042
     Dates: start: 20090824, end: 20090824
  14. MENTAX [Concomitant]
  15. TASIGNA [Suspect]
     Dosage: 800 MG, DAILY
     Route: 048
     Dates: start: 20100402, end: 20110412
  16. PREDNISOLONE [Suspect]
     Dosage: 50 MG, UNK
     Route: 042
     Dates: start: 20090813, end: 20090813
  17. CANDESARTAN CILEXETIL [Concomitant]
     Dosage: 2 MG, UNK
     Route: 048
     Dates: start: 20090807, end: 20090908
  18. OXINORM [Concomitant]
     Dosage: 1 DF
     Route: 048
     Dates: start: 20090817, end: 20090823
  19. LEUNASE [Concomitant]
  20. TASIGNA [Suspect]
     Indication: CHRONIC MYELOID LEUKAEMIA
     Dosage: 800 MG DAILY
     Route: 048
     Dates: start: 20090807, end: 20090819
  21. TASIGNA [Suspect]
     Dosage: 600 MG, DAILY
     Route: 048
     Dates: start: 20100217, end: 20110401
  22. SULFAMETHOXAZOLE [Suspect]
     Indication: PROPHYLAXIS
     Dosage: 1 DF, UNK
     Route: 048
     Dates: start: 20090807, end: 20091013
  23. DECADRON [Concomitant]
     Dosage: 1 ML, UNK
     Route: 042
     Dates: end: 20090824
  24. LULICON [Concomitant]
  25. PREDNISOLONE [Suspect]
     Dosage: 60 MG, UNK
     Route: 042
     Dates: start: 20090807, end: 20090812
  26. PROCHLORPERAZINE [Concomitant]
     Indication: PROPHYLAXIS
     Dosage: 15 MG, UNK
     Route: 048
     Dates: start: 20090807, end: 20090818
  27. DECADRON [Concomitant]
     Dosage: 5 ML, UNK
     Route: 042
     Dates: start: 20090824, end: 20090824
  28. NORVASC [Concomitant]
     Indication: HYPERTENSION
     Dosage: 5 MG, UNK
     Route: 048
     Dates: start: 20100203
  29. TASIGNA [Suspect]
     Dosage: 400 MG DAILY
     Route: 048
     Dates: start: 20090824, end: 20100216
  30. ACETAMINOPHEN [Suspect]
     Dosage: 4 DF, UNK
     Dates: start: 20090819, end: 20100409
  31. LAXOBERON [Concomitant]
     Indication: PROPHYLAXIS
     Dosage: UNK
     Route: 048
     Dates: start: 20090906, end: 20090911
  32. PYDOXAL [Concomitant]
  33. SULFAMETHOXAZOLE [Suspect]
     Dosage: 1 DF, UNK
     Route: 048
     Dates: start: 20100417, end: 20100506
  34. FAMOTIDINE [Concomitant]
     Indication: PROPHYLAXIS
     Dosage: 40 MG, UNK
     Route: 048
     Dates: start: 20090807
  35. ATARAX [Concomitant]
     Indication: PROPHYLAXIS
     Dosage: 1 DF, UNK
     Route: 048
     Dates: start: 20090820, end: 20090830
  36. DIFLUCAN [Suspect]
     Indication: PROPHYLAXIS
     Dosage: 200 MG, DAILY
     Route: 048
     Dates: start: 20100424, end: 20100506
  37. PURSENNID [Concomitant]
     Indication: PROPHYLAXIS
     Dosage: 12 MG, UNK
     Dates: start: 20090807, end: 20091110
  38. MEROPENEM [Concomitant]
     Dosage: 1.5 MG, UNK
     Route: 042
     Dates: start: 20090807, end: 20090813
  39. ROPIVACAINE HYDROCHLORIDE [Concomitant]
     Dosage: 10 ML, UNK
     Route: 042
     Dates: start: 20090818, end: 20091125
  40. GABAPENTIN [Concomitant]
  41. ISONIAZID [Concomitant]

REACTIONS (14)
  - FLATULENCE [None]
  - BLOOD UREA INCREASED [None]
  - HEPATIC FUNCTION ABNORMAL [None]
  - ORTHOSTATIC HYPOTENSION [None]
  - RENAL FAILURE [None]
  - BLOOD CREATININE INCREASED [None]
  - ILEUS PARALYTIC [None]
  - HYPOAESTHESIA [None]
  - CHEST PAIN [None]
  - HYPERKALAEMIA [None]
  - DECREASED APPETITE [None]
  - ABDOMINAL DISTENSION [None]
  - VOMITING [None]
  - HYPERTENSION [None]
